FAERS Safety Report 9837736 (Version 4)
Quarter: 2014Q1

REPORT INFORMATION
  Report Type: Spontaneous
  Country: GB (occurrence: GB)
  Receive Date: 20140123
  Receipt Date: 20140327
  Transmission Date: 20141002
  Serious: Yes (Other)
  Sender: FDA-Public Use
  Company Number: GB-BAYER-2013-152952

PATIENT
  Age: 48 Year
  Sex: Female
  Weight: 74.2 kg

DRUGS (2)
  1. CANESTEN COMBI 500MG PESSARY + 2% CREAM [Suspect]
     Indication: VULVOVAGINAL CANDIDIASIS
     Dosage: UNK UNK, BID
     Route: 061
     Dates: start: 20131205, end: 20131208
  2. CANESTEN COMBI 500MG PESSARY + 2% CREAM [Suspect]
     Indication: VULVOVAGINAL CANDIDIASIS
     Route: 067

REACTIONS (14)
  - Hypersensitivity [Recovering/Resolving]
  - Rash [Recovering/Resolving]
  - Burning sensation [Recovering/Resolving]
  - Painful respiration [Recovering/Resolving]
  - Pruritus generalised [Recovering/Resolving]
  - Chills [Recovering/Resolving]
  - Burning sensation [Recovering/Resolving]
  - Urticaria [Recovering/Resolving]
  - Pain of skin [Recovering/Resolving]
  - Skin warm [Recovering/Resolving]
  - Pruritus generalised [Recovering/Resolving]
  - Formication [Recovering/Resolving]
  - Rash pruritic [Recovering/Resolving]
  - Malaise [Recovered/Resolved]
